FAERS Safety Report 21753696 (Version 1)
Quarter: 2022Q4

REPORT INFORMATION
  Report Type: Spontaneous
  Country: US (occurrence: None)
  Receive Date: 20221219
  Receipt Date: 20221219
  Transmission Date: 20230113
  Serious: Yes (Hospitalization, Other)
  Sender: FDA-Public Use
  Company Number: None

PATIENT
  Age: 72 Year
  Sex: Male
  Weight: 125.1 kg

DRUGS (1)
  1. VYVGART [Suspect]
     Active Substance: EFGARTIGIMOD ALFA-FCAB
     Indication: Myasthenia gravis
     Dosage: FREQUENCY : WEEKLY;?
     Route: 042
     Dates: start: 20221012, end: 20221019

REACTIONS (9)
  - Nausea [None]
  - Abdominal pain [None]
  - Chest pain [None]
  - Myalgia [None]
  - Asthenia [None]
  - Fatigue [None]
  - Vision blurred [None]
  - Headache [None]
  - Condition aggravated [None]

NARRATIVE: CASE EVENT DATE: 20221024
